FAERS Safety Report 19285780 (Version 2)
Quarter: 2022Q2

REPORT INFORMATION
  Report Type: Spontaneous
  Country: US (occurrence: US)
  Receive Date: 20210521
  Receipt Date: 20220526
  Transmission Date: 20220721
  Serious: No
  Sender: FDA-Public Use
  Company Number: US-RADIUS HEALTH INC.-2020US002417

PATIENT
  Sex: Female

DRUGS (2)
  1. TYMLOS [Suspect]
     Active Substance: ABALOPARATIDE
     Indication: Product used for unknown indication
     Dosage: 80 MCG, UNK
     Route: 058
     Dates: start: 20200111, end: 20200111
  2. TYMLOS [Suspect]
     Active Substance: ABALOPARATIDE
     Dosage: UNK
     Dates: start: 20210701, end: 20210701

REACTIONS (4)
  - Nervousness [Unknown]
  - Asthenia [Unknown]
  - Palpitations [Unknown]
  - Dizziness [Unknown]

NARRATIVE: CASE EVENT DATE: 20200101
